FAERS Safety Report 15349131 (Version 2)
Quarter: 2018Q3

REPORT INFORMATION
  Report Type: Spontaneous
  Country: LV (occurrence: LV)
  Receive Date: 20180904
  Receipt Date: 20180918
  Transmission Date: 20181010
  Serious: Yes (Hospitalization)
  Sender: FDA-Public Use
  Company Number: LV-JNJFOC-20180843282

PATIENT
  Age: 83 Year
  Sex: Female

DRUGS (5)
  1. XARELTO [Suspect]
     Active Substance: RIVAROXABAN
     Indication: ATRIAL FIBRILLATION
     Route: 048
     Dates: start: 201708, end: 2018
  2. FUROSEMIDE. [Concomitant]
     Active Substance: FUROSEMIDE
     Indication: CARDIAC FAILURE
     Route: 048
  3. XARELTO [Suspect]
     Active Substance: RIVAROXABAN
     Indication: ATRIAL FIBRILLATION
     Route: 048
     Dates: start: 2018
  4. BETALOC [Concomitant]
     Active Substance: METOPROLOL TARTRATE
     Route: 048
     Dates: end: 2018
  5. LUCETAM [Concomitant]
     Route: 048
     Dates: start: 2018

REACTIONS (3)
  - Drug ineffective [Unknown]
  - Ischaemic stroke [Recovering/Resolving]
  - Off label use [Unknown]

NARRATIVE: CASE EVENT DATE: 20180530
